FAERS Safety Report 25637563 (Version 2)
Quarter: 2025Q4

REPORT INFORMATION
  Report Type: Spontaneous
  Country: EU (occurrence: EU)
  Receive Date: 20250804
  Receipt Date: 20251022
  Transmission Date: 20260119
  Serious: Yes (Other)
  Sender: AUROBINDO
  Company Number: EU-AEMPS-1722804

PATIENT
  Sex: Female
  Weight: 65 kg

DRUGS (2)
  1. IBUPROFEN [Interacting]
     Active Substance: IBUPROFEN
     Indication: Back pain
     Dosage: I TOOK ONE AND A LITTLE LESS THAN 8 HOURS LATER ANOTHER ONE (AND NO MORE)
     Route: 048
     Dates: start: 202506
  2. DROSPIRENONE AND ESTETROL [Interacting]
     Active Substance: DROSPIRENONE\ESTETROL MONOHYDRATE
     Indication: Oral contraception
     Dosage: UNK UNK, ONCE A DAY (1 A DAY AT THE SAME TIME)
     Route: 048
     Dates: start: 20230622

REACTIONS (5)
  - Dizziness [Recovered/Resolved]
  - Arrhythmia [Recovered/Resolved]
  - Headache [Recovered/Resolved]
  - Malaise [Recovered/Resolved]
  - Hypotension [Recovered/Resolved]

NARRATIVE: CASE EVENT DATE: 20250601
